FAERS Safety Report 8555958-6 (Version None)
Quarter: 2012Q3

REPORT INFORMATION
  Report Type: 
  Country: None (occurrence: None)
  Receive Date: 20120801
  Receipt Date: 20120727
  Transmission Date: 20120928
  Serious: Yes (Other)
  Sender: FDA-Public Use
  Company Number: TR-009507513-1207TUR012440

PATIENT

DRUGS (1)
  1. PEG-INTRON [Suspect]
     Indication: HEPATITIS B
     Dosage: 100 MICROGRAM, QW
     Route: 058
     Dates: start: 20120203

REACTIONS (2)
  - SKIN NECROSIS [None]
  - OFF LABEL USE [None]
